FAERS Safety Report 9292581 (Version 2)
Quarter: 2013Q2

REPORT INFORMATION
  Report Type: Report from Study
  Country: US (occurrence: US)
  Receive Date: 20130516
  Receipt Date: 20130517
  Transmission Date: 20140414
  Serious: Yes (Other)
  Sender: FDA-Public Use
  Company Number: US-JNJFOC-20130505682

PATIENT
  Age: 58 Year
  Sex: Female
  Weight: 75.3 kg

DRUGS (14)
  1. REMICADE [Suspect]
     Indication: ANKYLOSING SPONDYLITIS
     Route: 042
     Dates: start: 201212
  2. REMICADE [Suspect]
     Indication: PSORIATIC ARTHROPATHY
     Route: 042
     Dates: start: 201212
  3. EFFEXOR XR [Concomitant]
     Indication: PAIN MANAGEMENT
     Route: 048
     Dates: start: 2004
  4. EFFEXOR XR [Concomitant]
     Indication: ANXIETY
     Route: 048
     Dates: start: 2004
  5. EFFEXOR XR [Concomitant]
     Indication: DEPRESSION
     Route: 048
     Dates: start: 2004
  6. FLEXERIL [Concomitant]
     Indication: MUSCLE SPASMS
     Route: 048
     Dates: start: 2007
  7. OMEPRAZOLE [Concomitant]
     Indication: GASTROOESOPHAGEAL REFLUX DISEASE
     Route: 048
     Dates: start: 2004
  8. GABAPENTIN [Concomitant]
     Indication: FIBROMYALGIA
     Route: 048
  9. SIMVASTATIN [Concomitant]
     Indication: BLOOD CHOLESTEROL INCREASED
     Route: 048
     Dates: start: 2004
  10. TIMOLOL MALEATE [Concomitant]
     Indication: MIGRAINE
     Route: 048
     Dates: start: 2011
  11. NORCO [Concomitant]
     Indication: PAIN
     Dosage: 10/325MG
     Route: 048
  12. VALIUM [Concomitant]
     Route: 065
  13. CORTISONE [Concomitant]
     Route: 065
  14. PREDNISONE [Concomitant]
     Route: 065

REACTIONS (2)
  - Amnesia [Not Recovered/Not Resolved]
  - Migraine [Recovered/Resolved]
